FAERS Safety Report 8357221-5 (Version None)
Quarter: 2012Q2

REPORT INFORMATION
  Report Type: 
  Country: None (occurrence: None)
  Receive Date: 20120514
  Receipt Date: 20120501
  Transmission Date: 20120825
  Serious: Yes (Other)
  Sender: FDA-Public Use
  Company Number: TR-ELI_LILLY_AND_COMPANY-TR201204000366

PATIENT
  Sex: Male
  Weight: 62 kg

DRUGS (5)
  1. CLOPIXOL DEPOT [Concomitant]
     Dosage: 200 MG, UNKNOWN
     Route: 030
  2. ZYPREXA [Suspect]
     Dosage: UNK UNK, UNKNOWN
     Route: 048
     Dates: start: 20091201
  3. ZYPREXA [Suspect]
     Indication: SCHIZOPHRENIA
     Dosage: UNK UNK, UNKNOWN
     Route: 048
     Dates: start: 20090101, end: 20090101
  4. CLOPIXOL DEPOT [Concomitant]
     Dosage: 200 MG, UNKNOWN
     Route: 030
     Dates: start: 20091201, end: 20110601
  5. ZYPREXA [Suspect]
     Dosage: UNK UNK, UNKNOWN
     Route: 048
     Dates: end: 20120214

REACTIONS (15)
  - LOSS OF CONSCIOUSNESS [None]
  - GYNAECOMASTIA [None]
  - DYSPNOEA [None]
  - WEIGHT INCREASED [None]
  - TREMOR [None]
  - ABDOMINAL DISTENSION [None]
  - TACHYCARDIA [None]
  - EXTRAPYRAMIDAL DISORDER [None]
  - MUSCLE RIGIDITY [None]
  - POLYURIA [None]
  - ERECTILE DYSFUNCTION [None]
  - HEADACHE [None]
  - MUSCLE CONTRACTURE [None]
  - DIZZINESS [None]
  - ASTHENIA [None]
